FAERS Safety Report 9511608 (Version 2)
Quarter: 2013Q4

REPORT INFORMATION
  Report Type: Spontaneous
  Country: US (occurrence: US)
  Receive Date: 20130910
  Receipt Date: 20131202
  Transmission Date: 20140711
  Serious: Yes (Hospitalization, Other)
  Sender: FDA-Public Use
  Company Number: PHEH2013US018700

PATIENT
  Age: 70 Year
  Sex: Female

DRUGS (2)
  1. TASIGNA [Suspect]
     Indication: CHRONIC MYELOID LEUKAEMIA
     Dosage: 300 MG, BID
     Route: 048
     Dates: start: 20130624
  2. TASIGNA [Suspect]
     Dosage: 400 MG, BID
     Route: 048
     Dates: start: 201307, end: 20130903

REACTIONS (5)
  - Acute myocardial infarction [Not Recovered/Not Resolved]
  - Ejection fraction decreased [Unknown]
  - Electrocardiogram QT prolonged [Not Recovered/Not Resolved]
  - Coronary artery restenosis [Unknown]
  - Electrolyte imbalance [Unknown]
